FAERS Safety Report 19361197 (Version 3)
Quarter: 2021Q3

REPORT INFORMATION
  Report Type: Report from Study
  Country: None (occurrence: IN)
  Receive Date: 20210603
  Receipt Date: 20210915
  Transmission Date: 20211014
  Serious: Yes (Death, Hospitalization, Other)
  Sender: FDA-Public Use
  Company Number: IN-ABBVIE-20K-078-3535112-00

PATIENT
  Age: 72 Year
  Sex: Male

DRUGS (1)
  1. IBRUTINIB [Suspect]
     Active Substance: IBRUTINIB
     Indication: CHRONIC LYMPHOCYTIC LEUKAEMIA
     Route: 048
     Dates: start: 20200417, end: 20200810

REACTIONS (7)
  - Skin lesion [Unknown]
  - Infection [Unknown]
  - Peripheral swelling [Unknown]
  - Insomnia [Unknown]
  - Drug ineffective [Unknown]
  - SARS-CoV-2 test positive [Fatal]
  - Muscle spasms [Unknown]

NARRATIVE: CASE EVENT DATE: 20200810
